FAERS Safety Report 18336192 (Version 1)
Quarter: 2020Q4

REPORT INFORMATION
  Report Type: Report from Study
  Country: None (occurrence: TN)
  Receive Date: 20201001
  Receipt Date: 20201001
  Transmission Date: 20210113
  Serious: Yes (Hospitalization, Other)
  Sender: FDA-Public Use
  Company Number: TN-ABBVIE-20K-160-3588439-00

PATIENT
  Age: 44 Year
  Sex: Male

DRUGS (5)
  1. URSOLVAN [Concomitant]
     Active Substance: URSODIOL
     Indication: CHOLECYSTECTOMY
     Route: 048
     Dates: start: 2014
  2. INEXIUM [Concomitant]
     Active Substance: ESOMEPRAZOLE
     Indication: GASTRIC ULCER
     Route: 048
     Dates: start: 2016
  3. INEXIUM [Concomitant]
     Active Substance: ESOMEPRAZOLE
     Indication: STENOSIS
  4. HUMIRA [Suspect]
     Active Substance: ADALIMUMAB
     Indication: CROHN^S DISEASE
     Route: 058
     Dates: start: 20170215, end: 202001
  5. FORTADOL [Concomitant]
     Indication: CHOLECYSTECTOMY
     Route: 048
     Dates: start: 2019

REACTIONS (2)
  - Pancreatitis [Not Recovered/Not Resolved]
  - C-reactive protein increased [Not Recovered/Not Resolved]

NARRATIVE: CASE EVENT DATE: 202009
